FAERS Safety Report 14056385 (Version 1)
Quarter: 2017Q4

REPORT INFORMATION
  Report Type: Spontaneous
  Country: FR (occurrence: FR)
  Receive Date: 20171006
  Receipt Date: 20171006
  Transmission Date: 20180321
  Serious: Yes (Hospitalization)
  Sender: FDA-Public Use
  Company Number: FR-ASTRAZENECA-2017SF00294

PATIENT
  Age: 12531 Day
  Sex: Female

DRUGS (10)
  1. SOLUPRED [Concomitant]
     Active Substance: PREDNISOLONE
  2. BISOPROLOL [Concomitant]
     Active Substance: BISOPROLOL
  3. KARDEGIC [Concomitant]
     Active Substance: ASPIRIN DL-LYSINE
  4. CELLCEPT [Concomitant]
     Active Substance: MYCOPHENOLATE MOFETIL\MYCOPHENOLATE MOFETIL HYDROCHLORIDE
     Dosage: 1 G X2 MORNING, EVENING
  5. ALDACTONE [Concomitant]
     Active Substance: SPIRONOLACTONE
  6. TACROLIMUS. [Concomitant]
     Active Substance: TACROLIMUS
  7. INEXIUM [Concomitant]
     Active Substance: ESOMEPRAZOLE
  8. PROCORALAN [Concomitant]
     Active Substance: IVABRADINE
     Dosage: 5 MG X2 MORNING, EVENING
  9. XEROQUEL SR [Suspect]
     Active Substance: QUETIAPINE FUMARATE
     Indication: PRODUCT USED FOR UNKNOWN INDICATION
     Route: 048
     Dates: start: 201702, end: 201705
  10. LASILIX [Concomitant]
     Active Substance: FUROSEMIDE
     Dosage: 125 MG MORNING AND 80 MG NOON

REACTIONS (2)
  - Cardiogenic shock [Recovered/Resolved]
  - Cardiac failure [Recovered/Resolved]

NARRATIVE: CASE EVENT DATE: 20170401
